FAERS Safety Report 8662896 (Version 5)
Quarter: 2012Q4

REPORT INFORMATION
  Report Type: Report from Study
  Country: US (occurrence: US)
  Receive Date: 20120712
  Receipt Date: 20121108
  Transmission Date: 20130627
  Serious: Yes (Life-Threatening, Hospitalization, Other)
  Sender: FDA-Public Use
  Company Number: US-ABBOTT-12P-163-0952040-00

PATIENT
  Age: 18 Year
  Sex: Female
  Weight: 71 kg

DRUGS (9)
  1. HUMIRA [Suspect]
     Indication: JUVENILE ARTHRITIS
     Route: 058
     Dates: start: 20100311, end: 20120628
  2. ESCITALOPRAM [Concomitant]
     Indication: TEMPOROMANDIBULAR JOINT SYNDROME
     Dates: start: 200906
  3. DICLOFENAC [Concomitant]
     Indication: PAIN
     Dates: start: 20100310
  4. SULFASALAZINE [Concomitant]
     Indication: JUVENILE ARTHRITIS
     Dates: start: 20100727
  5. SULFASALAZINE [Concomitant]
     Indication: PAIN
  6. TOPAMAX [Concomitant]
     Indication: HEADACHE
     Dates: start: 20100727, end: 20110221
  7. TOPAMAX [Concomitant]
     Dates: start: 20110221
  8. DEPO PROVERA [Concomitant]
     Indication: CONTRACEPTION
     Dosage: 1 injection
     Dates: start: 201110
  9. TRAMADOL [Concomitant]
     Indication: PAIN
     Dates: start: 20100913, end: 20120629

REACTIONS (1)
  - Suicide attempt [Recovered/Resolved]
